FAERS Safety Report 10901000 (Version 2)
Quarter: 2015Q1

REPORT INFORMATION
  Report Type: Spontaneous
  Country: VN (occurrence: VN)
  Receive Date: 20150310
  Receipt Date: 20150324
  Transmission Date: 20150721
  Serious: Yes (Death, Life-Threatening, Hospitalization)
  Sender: FDA-Public Use
  Company Number: VN-NOVOPROD-441072

PATIENT
  Age: 29 Year
  Sex: Female

DRUGS (2)
  1. NOVOSEVEN [Suspect]
     Active Substance: COAGULATION FACTOR VIIA RECOMBINANT HUMAN
     Indication: UTERINE INJURY
     Dosage: 5 VIALS, ONLY ONE DOSE TAKEN
     Route: 065
     Dates: start: 20150225, end: 20150225
  2. NOVOSEVEN [Suspect]
     Active Substance: COAGULATION FACTOR VIIA RECOMBINANT HUMAN
     Indication: OFF LABEL USE

REACTIONS (2)
  - Multi-organ failure [Fatal]
  - Off label use [Unknown]

NARRATIVE: CASE EVENT DATE: 20150225
